FAERS Safety Report 4405200-2 (Version None)
Quarter: 2004Q3

REPORT INFORMATION
  Report Type: 
  Country: None (occurrence: None)
  Receive Date: 20040722
  Receipt Date: 20040722
  Transmission Date: 20050211
  Serious: Yes (Other)
  Sender: FDA-Public Use
  Company Number: None

PATIENT
  Age: 83 Year
  Sex: Female
  Weight: 70.7611 kg

DRUGS (2)
  1. MIACALCIN [Suspect]
     Dosage: EVERY OTHER DAY ALTERNATE SPRAY IN NOSTRILS
     Route: 045
     Dates: start: 20001101, end: 20010107
  2. FOSAMAX [Suspect]
     Dosage: FULL GLASS WATER 1 EACH AM EMPTY STOMACH SIT 1/2 HR.

REACTIONS (2)
  - CONDITION AGGRAVATED [None]
  - NEUROPATHY PERIPHERAL [None]
